FAERS Safety Report 9402903 (Version 1)
Quarter: 2013Q3

REPORT INFORMATION
  Report Type: Spontaneous
  Country: NO (occurrence: NO)
  Receive Date: 20130716
  Receipt Date: 20130716
  Transmission Date: 20140515
  Serious: Yes (Hospitalization)
  Sender: FDA-Public Use
  Company Number: NO-TEVA-417291ISR

PATIENT
  Age: 27 Year
  Sex: Male
  Weight: 73 kg

DRUGS (2)
  1. TRAMADOL RATIOPHARM [Suspect]
     Indication: ANALGESIC THERAPY
     Dosage: FIKK BIVIRKNINGER SELV VED NEDTRAPPING TIL 3 DAGLIGE 1X50.
     Dates: start: 20120707, end: 20120712
  2. CETIRIZIN RATIOPHARM [Concomitant]
     Indication: SEASONAL ALLERGY
     Dates: start: 20120601, end: 20120731

REACTIONS (12)
  - Vomiting [Recovered/Resolved]
  - Anxiety [Recovered/Resolved]
  - Paranoia [Recovered/Resolved]
  - Pruritus generalised [Recovered/Resolved]
  - Nightmare [Recovered/Resolved]
  - Cold sweat [Recovered/Resolved]
  - Bradyphrenia [Recovered/Resolved]
  - Muscle spasms [Recovered/Resolved]
  - Muscular weakness [Recovered/Resolved]
  - Feeling abnormal [None]
  - Feeling abnormal [None]
  - Frustration [None]
